FAERS Safety Report 15209083 (Version 1)
Quarter: 2018Q3

REPORT INFORMATION
  Report Type: Spontaneous
  Country: CZ (occurrence: CZ)
  Receive Date: 20180727
  Receipt Date: 20180727
  Transmission Date: 20181010
  Serious: Yes (Other)
  Sender: FDA-Public Use
  Company Number: PHHY2018CZ054793

PATIENT
  Sex: Female

DRUGS (6)
  1. PERTUZUMAB. [Suspect]
     Active Substance: PERTUZUMAB
     Indication: PRODUCT USED FOR UNKNOWN INDICATION
     Dosage: 420 MG/M2, UNK
     Route: 042
     Dates: start: 201412, end: 201505
  2. TRASTUZUMAB. [Suspect]
     Active Substance: TRASTUZUMAB
     Dosage: 6 MG/KG, UNK
     Route: 042
     Dates: start: 201412, end: 201505
  3. DOCETAXEL. [Suspect]
     Active Substance: DOCETAXEL
     Dosage: 100 MG/M2, UNK
     Route: 042
  4. PERTUZUMAB. [Suspect]
     Active Substance: PERTUZUMAB
     Dosage: 840 MG, UNK
     Route: 042
     Dates: start: 201412, end: 201505
  5. TRASTUZUMAB. [Suspect]
     Active Substance: TRASTUZUMAB
     Indication: METASTASES TO LUNG
     Dosage: 8 MG/KG, UNK
     Route: 042
     Dates: start: 201412, end: 201505
  6. DOCETAXEL. [Suspect]
     Active Substance: DOCETAXEL
     Indication: METASTASES TO LUNG
     Dosage: 75 MG/M2, UNK
     Route: 042

REACTIONS (2)
  - Toxicity to various agents [Unknown]
  - Neuropathy peripheral [Unknown]

NARRATIVE: CASE EVENT DATE: 2015
